FAERS Safety Report 23023894 (Version 6)
Quarter: 2023Q4

REPORT INFORMATION
  Report Type: Report from Study
  Country: JP (occurrence: JP)
  Receive Date: 20231003
  Receipt Date: 20231207
  Transmission Date: 20240109
  Serious: Yes (Other)
  Sender: FDA-Public Use
  Company Number: JP-002147023-NVSJ2023JP009429

PATIENT
  Age: 83 Year
  Sex: Male

DRUGS (2)
  1. TABRECTA [Suspect]
     Active Substance: CAPMATINIB
     Indication: Non-small cell lung cancer recurrent
     Dosage: 400 MG
     Route: 048
     Dates: start: 20230307, end: 20230501
  2. TABRECTA [Suspect]
     Active Substance: CAPMATINIB
     Dosage: 200 MG
     Route: 048
     Dates: start: 20230725, end: 20230914

REACTIONS (17)
  - Blood alkaline phosphatase increased [Not Recovered/Not Resolved]
  - Non-small cell lung cancer recurrent [Not Recovered/Not Resolved]
  - Imaging procedure abnormal [Unknown]
  - Malignant neoplasm progression [Not Recovered/Not Resolved]
  - Metastases to liver [Not Recovered/Not Resolved]
  - Metastases to bone [Not Recovered/Not Resolved]
  - Malaise [Recovered/Resolved]
  - Concomitant disease aggravated [Recovered/Resolved]
  - Oedema peripheral [Recovered/Resolved]
  - Concomitant disease aggravated [Recovered/Resolved]
  - Decreased appetite [Not Recovered/Not Resolved]
  - Concomitant disease aggravated [Not Recovered/Not Resolved]
  - Malaise [Not Recovered/Not Resolved]
  - Concomitant disease aggravated [Not Recovered/Not Resolved]
  - Aspartate aminotransferase increased [Not Recovered/Not Resolved]
  - Alanine aminotransferase increased [Recovered/Resolved]
  - Blood lactate dehydrogenase increased [Recovered/Resolved]

NARRATIVE: CASE EVENT DATE: 20230502
